FAERS Safety Report 4390380-8 (Version None)
Quarter: 2004Q2

REPORT INFORMATION
  Report Type: 
  Country: None (occurrence: None)
  Receive Date: 20040630
  Receipt Date: 20040607
  Transmission Date: 20050107
  Serious: Yes (Hospitalization)
  Sender: FDA-Public Use
  Company Number: 2004-FF-00354FF

PATIENT
  Age: 40 Year
  Sex: Female

DRUGS (2)
  1. VIRAMUNE [Suspect]
     Indication: HIV INFECTION
     Dosage: MG (MG, 2 IN 1 D)  PO
     Route: 048
  2. COMBIVIR [Concomitant]

REACTIONS (3)
  - HEPATIC CIRRHOSIS [None]
  - HEPATOMEGALY [None]
  - PORTAL VEIN THROMBOSIS [None]
